FAERS Safety Report 8068099-1 (Version None)
Quarter: 2012Q1

REPORT INFORMATION
  Report Type: 
  Country: None (occurrence: None)
  Receive Date: 20120124
  Receipt Date: 20110920
  Transmission Date: 20120608
  Serious: No
  Sender: FDA-Public Use
  Company Number: US-AMGEN-USASP2011048628

PATIENT
  Age: 56 Year
  Sex: Female

DRUGS (8)
  1. TOPAMAX [Concomitant]
  2. PROPRANOLOL [Concomitant]
  3. RELPAX [Concomitant]
  4. PROLIA [Suspect]
     Indication: OSTEOLYSIS
     Dosage: 60 MG, Q6MO
     Dates: start: 20110201
  5. NORTRIPTYLINE HCL [Concomitant]
  6. OSCAL D                            /00944201/ [Concomitant]
  7. PURE CALCIUM (MCHA) [Concomitant]
  8. NEXIUM [Concomitant]

REACTIONS (4)
  - MOUTH ULCERATION [None]
  - MUSCLE SPASMS [None]
  - PAIN IN JAW [None]
  - BACK PAIN [None]
